FAERS Safety Report 10595309 (Version 1)
Quarter: 2014Q4

REPORT INFORMATION
  Report Type: Spontaneous
  Country: US (occurrence: US)
  Receive Date: 20141120
  Receipt Date: 20141120
  Transmission Date: 20150529
  Serious: Yes (Hospitalization, Other)
  Sender: FDA-Public Use
  Company Number: US-JNJFOC-20141111167

PATIENT

DRUGS (1)
  1. REMICADE [Suspect]
     Active Substance: INFLIXIMAB
     Indication: PRODUCT USED FOR UNKNOWN INDICATION
     Route: 042
     Dates: start: 201405

REACTIONS (8)
  - Pleural effusion [Not Recovered/Not Resolved]
  - Cardiac tamponade [Unknown]
  - Pericarditis [Not Recovered/Not Resolved]
  - Diastolic dysfunction [Unknown]
  - Cardiac disorder [Unknown]
  - Lupus-like syndrome [Unknown]
  - Right ventricular failure [Unknown]
  - Pericardial effusion [Unknown]

NARRATIVE: CASE EVENT DATE: 2014
